FAERS Safety Report 7450809-5 (Version None)
Quarter: 2011Q2

REPORT INFORMATION
  Report Type: 
  Country: None (occurrence: None)
  Receive Date: 20110422
  Receipt Date: 20110412
  Transmission Date: 20111010
  Serious: Yes (Other)
  Sender: FDA-Public Use
  Company Number: 1000020256

PATIENT

DRUGS (9)
  1. DICLECTIN (DOXYLAMINE SUCCINATE, PYRIDOXINE HYDROCHLORIDE) (TABLETS) ( [Concomitant]
  2. CELEXA [Suspect]
  3. FLEXERIL (CYCLOBENZAPRINE HYDROCHLORIDE) (TABLETS) (CYCLOPBENAZPRINE H [Concomitant]
  4. IMOVANE (ZOPICLONE) (TABLETS) (ZOPICLONE) [Concomitant]
  5. LIDOCAINE [Concomitant]
  6. OXYCONTIN (OXYCODONE HYDROCHLORIDE) (TABLETS0 (OXYCODONE HYDROCHLORIDE [Concomitant]
  7. CLOMID (CLOMIFENE CITRATE) (TABLETS)- (CLOMIFENE CITRATE) [Concomitant]
  8. NALOXONE (NALOXONE) (NALOXONE) [Concomitant]
  9. TRAMACET (TRAMADOL HYDROCHLORIDE, ACETAMINOPHEN) (TABLETS) (TRAMADOL H [Concomitant]

REACTIONS (2)
  - DRUG WITHDRAWAL SYNDROME NEONATAL [None]
  - MATERNAL DRUGS AFFECTING FOETUS [None]
